FAERS Safety Report 12256733 (Version 1)
Quarter: 2016Q2

REPORT INFORMATION
  Report Type: Spontaneous
  Country: US (occurrence: TH)
  Receive Date: 20160412
  Receipt Date: 20160412
  Transmission Date: 20160815
  Serious: Yes (Other)
  Sender: FDA-Public Use
  Company Number: US-PFIZER INC-2016203788

PATIENT
  Age: 42 Year
  Sex: Male
  Weight: 101 kg

DRUGS (4)
  1. GABAPENTIN. [Suspect]
     Active Substance: GABAPENTIN
     Dosage: 400 MG, 3X/DAY
     Route: 048
  2. DILANTIN [Concomitant]
     Active Substance: PHENYTOIN
     Dosage: 400 MG, 2X/DAY (400 MG IN THE MORNING AND 400 MG IN THE EVENING)
  3. GABAPENTIN. [Suspect]
     Active Substance: GABAPENTIN
     Indication: EPILEPSY
     Dosage: 2400 MG, 3X/DAY
     Route: 048
  4. GABAPENTIN. [Suspect]
     Active Substance: GABAPENTIN
     Indication: NEURALGIA
     Dosage: 1800 MG, 3X/DAY
     Route: 048

REACTIONS (8)
  - Sedation [Unknown]
  - Fatigue [Unknown]
  - Energy increased [Unknown]
  - Mental impairment [Unknown]
  - Feeling drunk [Unknown]
  - Hypoaesthesia [Unknown]
  - Amnesia [Unknown]
  - Overdose [Unknown]
